FAERS Safety Report 17552153 (Version 1)
Quarter: 2020Q1

REPORT INFORMATION
  Report Type: Spontaneous
  Country: US (occurrence: US)
  Receive Date: 20200317
  Receipt Date: 20200317
  Transmission Date: 20200409
  Serious: No
  Sender: FDA-Public Use
  Company Number: US-PERRIGO-19US009501

PATIENT
  Age: 38 Year
  Sex: Female
  Weight: 58.05 kg

DRUGS (1)
  1. NICOTINE POLACRILEX [Suspect]
     Active Substance: NICOTINE
     Indication: SMOKING CESSATION THERAPY
     Dosage: 4 MG, 5 TIMES DAILY
     Route: 002
     Dates: start: 20190728, end: 20190802

REACTIONS (4)
  - Oral pain [Recovered/Resolved]
  - Throat tightness [Recovered/Resolved]
  - Abdominal discomfort [Recovered/Resolved]
  - Gastrooesophageal reflux disease [Recovering/Resolving]

NARRATIVE: CASE EVENT DATE: 20190728
